FAERS Safety Report 8212633-5 (Version None)
Quarter: 2012Q1

REPORT INFORMATION
  Report Type: 
  Country: None (occurrence: None)
  Receive Date: 20120229
  Receipt Date: 20111208
  Transmission Date: 20120608
  Serious: Yes (Other)
  Sender: FDA-Public Use
  Company Number: KV201100289

PATIENT
  Age: 20 Year
  Sex: Female

DRUGS (1)
  1. MAKENA [Suspect]
     Indication: PREMATURE DELIVERY
     Dosage: 250 MG, SINGLE, INTRAMUSCULAR
     Route: 030
     Dates: start: 20111110, end: 20111110

REACTIONS (1)
  - PREMATURE DELIVERY [None]
